FAERS Safety Report 4871517-0 (Version None)
Quarter: 2005Q4

REPORT INFORMATION
  Report Type: 
  Country: None (occurrence: None)
  Receive Date: 20051229
  Receipt Date: 20051212
  Transmission Date: 20060501
  Serious: Yes (Hospitalization)
  Sender: FDA-Public Use
  Company Number: US200512002092

PATIENT
  Age: 78 Year
  Sex: Female

DRUGS (2)
  1. FORTEO [Suspect]
     Indication: BONE DENSITY DECREASED
     Dates: start: 20051012
  2. COLACE (DOCUSATE SODIUM) [Concomitant]

REACTIONS (7)
  - COLONOSCOPY ABNORMAL [None]
  - CONDITION AGGRAVATED [None]
  - CONSTIPATION [None]
  - FEELING ABNORMAL [None]
  - MALAISE [None]
  - PHARMACEUTICAL PRODUCT COMPLAINT [None]
  - PROCEDURAL PAIN [None]
